FAERS Safety Report 12712848 (Version 2)
Quarter: 2016Q4

REPORT INFORMATION
  Report Type: Report from Study
  Country: None (occurrence: ES)
  Receive Date: 20160902
  Receipt Date: 20161114
  Transmission Date: 20170207
  Serious: Yes (Other)
  Sender: FDA-Public Use
  Company Number: ES-ABBVIE-16P-144-1717793-00

PATIENT
  Age: 59 Year
  Sex: Female
  Weight: 69 kg

DRUGS (9)
  1. REBETOL [Suspect]
     Active Substance: RIBAVIRIN
     Indication: HEPATITIS C
     Dosage: 2-0-3
     Route: 048
     Dates: start: 20160125, end: 20160223
  2. VIEKIRAX [Suspect]
     Active Substance: OMBITASVIR\PARITAPREVIR\RITONAVIR
     Indication: HEPATITIS C
     Route: 048
     Dates: start: 20160125, end: 201606
  3. EXVIERA [Suspect]
     Active Substance: DASABUVIR
     Indication: HEPATITIS C
     Route: 048
     Dates: start: 20160125, end: 201606
  4. REBETOL [Suspect]
     Active Substance: RIBAVIRIN
     Route: 048
     Dates: end: 201606
  5. ESCITALOPRAM [Concomitant]
     Active Substance: ESCITALOPRAM OXALATE
     Indication: DEPRESSION
     Route: 048
     Dates: start: 20160122, end: 20160715
  6. VIEKIRAX [Suspect]
     Active Substance: OMBITASVIR\PARITAPREVIR\RITONAVIR
     Route: 048
  7. EUTIROX [Concomitant]
     Active Substance: LEVOTHYROXINE SODIUM
     Indication: HYPOTHYROIDISM
     Route: 048
     Dates: start: 2005
  8. VIEKIRAX [Suspect]
     Active Substance: OMBITASVIR\PARITAPREVIR\RITONAVIR
     Route: 048
  9. REBETOL [Suspect]
     Active Substance: RIBAVIRIN
     Route: 048
     Dates: start: 20160223

REACTIONS (18)
  - Vomiting [Recovered/Resolved]
  - Toothache [Recovered/Resolved]
  - Alopecia [Not Recovered/Not Resolved]
  - Neurodermatitis [Not Recovered/Not Resolved]
  - Somnolence [Not Recovered/Not Resolved]
  - Pruritus [Not Recovered/Not Resolved]
  - Dental caries [Recovering/Resolving]
  - Depression [Not Recovered/Not Resolved]
  - Fatigue [Not Recovered/Not Resolved]
  - Rash [Not Recovered/Not Resolved]
  - Tooth loss [Unknown]
  - Abdominal discomfort [Recovering/Resolving]
  - Dry skin [Not Recovered/Not Resolved]
  - Emotional disorder [Unknown]
  - Blood bilirubin increased [Not Recovered/Not Resolved]
  - Tooth repair [Not Recovered/Not Resolved]
  - Anaemia [Not Recovered/Not Resolved]
  - Feeling cold [Unknown]

NARRATIVE: CASE EVENT DATE: 20160125
